FAERS Safety Report 9467878 (Version 2)
Quarter: 2013Q3

REPORT INFORMATION
  Report Type: Report from Study
  Country: US (occurrence: US)
  Receive Date: 20130821
  Receipt Date: 20130903
  Transmission Date: 20140515
  Serious: Yes (Other)
  Sender: FDA-Public Use
  Company Number: US-ALEXION-A201301949

PATIENT
  Age: 2 Year
  Sex: Female
  Weight: 12 kg

DRUGS (3)
  1. SOLIRIS [Suspect]
     Indication: HAEMOLYTIC URAEMIC SYNDROME
     Dosage: 300 MG, Q2W
     Route: 042
     Dates: start: 20130429
  2. ANTIHYPERTENSIVES [Concomitant]
     Dosage: UNK
     Dates: end: 201305
  3. MIRALAX [Concomitant]
     Dosage: UNK

REACTIONS (5)
  - Poor venous access [Unknown]
  - Constipation [Unknown]
  - Dehydration [Unknown]
  - Abdominal pain upper [Unknown]
  - Urticaria [Unknown]
